FAERS Safety Report 7041412-X (Version None)
Quarter: 2010Q4

REPORT INFORMATION
  Report Type: 
  Country: None (occurrence: None)
  Receive Date: 20101013
  Receipt Date: 20101008
  Transmission Date: 20110411
  Serious: Yes (Other)
  Sender: FDA-Public Use
  Company Number: US-AMGEN-QUU444240

PATIENT
  Sex: Male

DRUGS (5)
  1. EPOGEN [Suspect]
     Indication: DIALYSIS
     Route: 042
  2. LISINOPRIL [Concomitant]
  3. CARVEDILOL [Concomitant]
  4. CALCITRIOL [Concomitant]
  5. HEPARIN [Concomitant]

REACTIONS (1)
  - HAEMOLYSIS [None]
